FAERS Safety Report 9759604 (Version 1)
Quarter: 2013Q4

REPORT INFORMATION
  Report Type: Spontaneous
  Country: US (occurrence: US)
  Receive Date: 20131216
  Receipt Date: 20131216
  Transmission Date: 20140711
  Serious: Yes (Hospitalization)
  Sender: FDA-Public Use
  Company Number: US-GILEAD-2010-0028171

PATIENT
  Age: 68 Year
  Sex: Female
  Weight: 99.1 kg

DRUGS (9)
  1. LETAIRIS [Suspect]
     Indication: PULMONARY ARTERIAL HYPERTENSION
     Route: 048
     Dates: start: 20100209, end: 20100328
  2. LASIX [Concomitant]
  3. LISINOPRIL [Concomitant]
  4. LOPRESSOR [Concomitant]
  5. AMLODIPINE [Concomitant]
  6. SINGULAIR [Concomitant]
  7. MELOXICAM [Concomitant]
  8. FLUOXETINE [Concomitant]
  9. TEMAZEPAM [Concomitant]

REACTIONS (1)
  - Dyspnoea [Unknown]
